FAERS Safety Report 12897602 (Version 3)
Quarter: 2017Q1

REPORT INFORMATION
  Report Type: Spontaneous
  Country: US (occurrence: US)
  Receive Date: 20161031
  Receipt Date: 20170324
  Transmission Date: 20170428
  Serious: Yes (Hospitalization, Other)
  Sender: FDA-Public Use
  Company Number: US-PFIZER INC-2016501392

PATIENT
  Age: 56 Year
  Sex: Male

DRUGS (11)
  1. DEXILANT [Concomitant]
     Active Substance: DEXLANSOPRAZOLE
     Dosage: 60 MG, 1X/DAY
  2. CARAFATE [Concomitant]
     Active Substance: SUCRALFATE
     Dosage: 12 G, 4X/DAY
  3. CYCLOBENZAPRIN [Concomitant]
     Active Substance: CYCLOBENZAPRINE
     Dosage: 10 MG, 1X/DAY
  4. KEPPRA [Concomitant]
     Active Substance: LEVETIRACETAM
     Indication: SEIZURE
     Dosage: 500 MG ONE TABLET IN THE MORNING AND ONE AND A HALF TABLETS IN THE EVENING
     Route: 048
     Dates: start: 2014
  5. PAROXETINE. [Concomitant]
     Active Substance: PAROXETINE
     Indication: ANXIETY
     Dosage: 20 MG, DAILY
     Dates: start: 2016
  6. LEVETIRACETAM. [Concomitant]
     Active Substance: LEVETIRACETAM
     Dosage: 500 MG, 2X/DAY
  7. LYRICA [Suspect]
     Active Substance: PREGABALIN
     Dosage: UNK
  8. LYRICA [Suspect]
     Active Substance: PREGABALIN
     Dosage: 75 MG, 2X/DAY
     Dates: start: 201512
  9. LYRICA [Suspect]
     Active Substance: PREGABALIN
     Indication: FIBROMYALGIA
     Dosage: 75 MG, 2X/DAY
     Route: 048
     Dates: start: 2014
  10. KEPPRA [Concomitant]
     Active Substance: LEVETIRACETAM
     Dosage: UNK
     Dates: start: 2016
  11. PAROXETINE. [Concomitant]
     Active Substance: PAROXETINE
     Indication: HYPERTENSION
     Dosage: 20 MG, 1X/DAY
     Dates: start: 201606

REACTIONS (2)
  - Disease recurrence [Not Recovered/Not Resolved]
  - Oesophageal rupture [Not Recovered/Not Resolved]

NARRATIVE: CASE EVENT DATE: 20150423
